FAERS Safety Report 7529975-9 (Version None)
Quarter: 2011Q2

REPORT INFORMATION
  Report Type: 
  Country: None (occurrence: None)
  Receive Date: 20110607
  Receipt Date: 20110531
  Transmission Date: 20111010
  Serious: Yes (Hospitalization)
  Sender: FDA-Public Use
  Company Number: US-MERCK-1103USA01645

PATIENT
  Age: 58 Year
  Sex: Female

DRUGS (3)
  1. METFORMIN [Concomitant]
     Route: 065
  2. GLYBURIDE [Concomitant]
     Route: 065
  3. SINGULAIR [Suspect]
     Indication: HYPERSENSITIVITY
     Dosage: 1 STANDARD PACKAGE BOTTLE OF 30
     Route: 048
     Dates: start: 20081229

REACTIONS (9)
  - CARDIAC DISORDER [None]
  - PRODUCT COLOUR ISSUE [None]
  - CEREBROVASCULAR ACCIDENT [None]
  - TYPE 2 DIABETES MELLITUS [None]
  - SPUTUM INCREASED [None]
  - CHOKING SENSATION [None]
  - DRUG EFFECT DECREASED [None]
  - COUGH [None]
  - PRODUCT SIZE ISSUE [None]
